FAERS Safety Report 7125971-4 (Version None)
Quarter: 2010Q4

REPORT INFORMATION
  Report Type: 
  Country: None (occurrence: None)
  Receive Date: 20101129
  Receipt Date: 20101117
  Transmission Date: 20110411
  Serious: Yes (Other)
  Sender: FDA-Public Use
  Company Number: US-JNJFOC-20101106647

PATIENT
  Sex: Male

DRUGS (4)
  1. FENTANYL [Suspect]
     Indication: PAIN
     Route: 062
  2. XANAX [Suspect]
     Indication: ILL-DEFINED DISORDER
     Route: 065
  3. SEROQUEL [Suspect]
     Indication: ILL-DEFINED DISORDER
     Route: 065
  4. LEXAPRO [Suspect]
     Indication: ILL-DEFINED DISORDER
     Route: 065

REACTIONS (3)
  - BREAKTHROUGH PAIN [None]
  - CONFUSIONAL STATE [None]
  - ENCEPHALOPATHY [None]
